FAERS Safety Report 21143590 (Version 3)
Quarter: 2023Q4

REPORT INFORMATION
  Report Type: Report from Study
  Country: US (occurrence: US)
  Receive Date: 20220728
  Receipt Date: 20231215
  Transmission Date: 20240110
  Serious: Yes (Other)
  Sender: FDA-Public Use
  Company Number: US-TAKEDA-2021TUS075290

PATIENT
  Age: 81 Year
  Sex: Male

DRUGS (3)
  1. VEDOLIZUMAB [Suspect]
     Active Substance: VEDOLIZUMAB
     Indication: Crohn^s disease
     Dosage: 300 MILLIGRAM
     Route: 042
  2. VEDOLIZUMAB [Suspect]
     Active Substance: VEDOLIZUMAB
     Dosage: 300 MILLIGRAM, Q6WEEKS
     Route: 042
  3. VEDOLIZUMAB [Suspect]
     Active Substance: VEDOLIZUMAB
     Dosage: 300 MILLIGRAM, Q4WEEKS
     Route: 042

REACTIONS (4)
  - Crohn^s disease [Unknown]
  - Gastrointestinal disorder [Unknown]
  - Product dose omission issue [Unknown]
  - Off label use [Unknown]

NARRATIVE: CASE EVENT DATE: 20231121
